FAERS Safety Report 7890101-8 (Version None)
Quarter: 2011Q4

REPORT INFORMATION
  Report Type: 
  Country: None (occurrence: None)
  Receive Date: 20111103
  Receipt Date: 20111026
  Transmission Date: 20120403
  Serious: Yes (Other)
  Sender: FDA-Public Use
  Company Number: US-ROCHE-791271

PATIENT
  Sex: Male
  Weight: 79.45 kg

DRUGS (4)
  1. ACCUTANE [Suspect]
     Dates: start: 20001122, end: 20010309
  2. ACCUTANE [Suspect]
     Dates: start: 20011228, end: 20020601
  3. ACCUTANE [Suspect]
     Dates: start: 19991229, end: 20000526
  4. ACCUTANE [Suspect]
     Indication: ACNE
     Route: 065
     Dates: start: 19990108, end: 19990324

REACTIONS (4)
  - COLITIS ULCERATIVE [None]
  - PELVIC ABSCESS [None]
  - INFLAMMATORY BOWEL DISEASE [None]
  - EMOTIONAL DISTRESS [None]
